FAERS Safety Report 7076325 (Version 2)
Quarter: 2013Q1

REPORT INFORMATION
  Report Type: Spontaneous
  Country: JP (occurrence: JP)
  Receive Date: 20090810
  Receipt Date: 20130116
  Transmission Date: 20140127
  Serious: Yes (Hospitalization)
  Sender: FDA-Public Use
  Company Number: JP-BIOGENIDEC-2009BI024235

PATIENT
  Age: 47 Year
  Sex: Female
  Weight: 52 kg

DRUGS (7)
  1. AVONEX [Suspect]
     Indication: RELAPSING-REMITTING MULTIPLE SCLEROSIS
     Route: 030
     Dates: start: 20081209, end: 20090217
  2. AVONEX [Suspect]
     Indication: RELAPSING-REMITTING MULTIPLE SCLEROSIS
     Route: 030
     Dates: start: 20090616, end: 20100324
  3. NAIXAN [Concomitant]
     Indication: PROPHYLAXIS
     Route: 048
     Dates: start: 20081209
  4. PREDONINE [Concomitant]
     Indication: MULTIPLE SCLEROSIS
     Route: 048
     Dates: start: 20081209, end: 20081213
  5. TIZANON [Concomitant]
     Indication: PROPHYLAXIS
     Route: 048
     Dates: start: 20090112, end: 20090128
  6. PRIDOL [Concomitant]
     Indication: MULTIPLE SCLEROSIS
     Route: 042
     Dates: start: 20090121, end: 20090123
  7. BOFU-TSUSHO-SAN [Concomitant]

REACTIONS (2)
  - Drug-induced liver injury [Recovered/Resolved]
  - Multiple sclerosis relapse [Recovered/Resolved]
